FAERS Safety Report 23242606 (Version 1)
Quarter: 2023Q4

REPORT INFORMATION
  Report Type: Spontaneous
  Country: GB (occurrence: GB)
  Receive Date: 20231129
  Receipt Date: 20231129
  Transmission Date: 20240110
  Serious: Yes (Hospitalization, Other)
  Sender: FDA-Public Use
  Company Number: None

PATIENT
  Age: 75 Year
  Sex: Female

DRUGS (1)
  1. ZOLEDRONIC ACID [Suspect]
     Active Substance: ZOLEDRONIC ACID
     Indication: Osteoporotic fracture
     Dosage: UNK, (THINK IT WAS 500MG INFUSION)
     Route: 065
     Dates: start: 20231109

REACTIONS (1)
  - Generalised tonic-clonic seizure [Not Recovered/Not Resolved]

NARRATIVE: CASE EVENT DATE: 20231118
